FAERS Safety Report 13961113 (Version 1)
Quarter: 2017Q3

REPORT INFORMATION
  Report Type: Spontaneous
  Country: GB (occurrence: GB)
  Receive Date: 20170912
  Receipt Date: 20170912
  Transmission Date: 20171128
  Serious: Yes (Life-Threatening)
  Sender: FDA-Public Use
  Company Number: GB-GLAXOSMITHKLINE-GB2017139896

PATIENT
  Age: 28 Year
  Sex: Female

DRUGS (3)
  1. CEFUROXIME. [Suspect]
     Active Substance: CEFUROXIME
     Indication: FORCEPS DELIVERY
     Dosage: 1.5 G, UNK
     Route: 042
     Dates: start: 20170819, end: 20170819
  2. METRONIDAZOLE. [Suspect]
     Active Substance: METRONIDAZOLE
     Indication: FORCEPS DELIVERY
     Dosage: 500 MG, UNK
     Route: 042
     Dates: start: 20170819, end: 20170819
  3. OXYTOCIN. [Suspect]
     Active Substance: OXYTOCIN
     Indication: UTERINE CONTRACTIONS DURING PREGNANCY
     Dosage: 5 IU, UNK
     Route: 042
     Dates: start: 20170819

REACTIONS (4)
  - Tachycardia [Unknown]
  - Pruritus generalised [Recovered/Resolved]
  - Dermatitis allergic [Recovered/Resolved]
  - Hypotension [Recovered/Resolved]

NARRATIVE: CASE EVENT DATE: 20170819
